FAERS Safety Report 6396956-0 (Version None)
Quarter: 2009Q4

REPORT INFORMATION
  Report Type: 
  Country: None (occurrence: None)
  Receive Date: 20091012
  Receipt Date: 20090825
  Transmission Date: 20100525
  Serious: No
  Sender: FDA-Public Use
  Company Number: US-BAYER-200931504NA

PATIENT
  Sex: Female

DRUGS (1)
  1. MIRENA [Suspect]
     Indication: CONTRACEPTION
     Dosage: CONTINUOUS
     Route: 015
     Dates: start: 20090804

REACTIONS (4)
  - BACK PAIN [None]
  - METRORRHAGIA [None]
  - PROCEDURAL PAIN [None]
  - VAGINAL HAEMORRHAGE [None]
